FAERS Safety Report 18045918 (Version 1)
Quarter: 2020Q3

REPORT INFORMATION
  Report Type: Spontaneous
  Country: US (occurrence: US)
  Receive Date: 20200720
  Receipt Date: 20200720
  Transmission Date: 20201103
  Serious: No
  Sender: FDA-Public Use
  Company Number: US-LEXICON PHARMACEUTICALS, INC-20-1606-00539

PATIENT
  Age: 58 Year
  Sex: Male

DRUGS (17)
  1. BASAGLAR KWIKPEN [Concomitant]
     Active Substance: INSULIN GLARGINE
  2. ALLOPURINOL. [Concomitant]
     Active Substance: ALLOPURINOL
  3. AFINITOR [Concomitant]
     Active Substance: EVEROLIMUS
  4. CENTRUM [Concomitant]
     Active Substance: VITAMINS
  5. METFORMIN HCL [Concomitant]
     Active Substance: METFORMIN HYDROCHLORIDE
  6. SANDOSTATIN LAR DEPOT [Concomitant]
     Active Substance: OCTREOTIDE ACETATE
  7. XERMELO [Suspect]
     Active Substance: TELOTRISTAT ETHYL
  8. ATORVASTATIN [Concomitant]
     Active Substance: ATORVASTATIN
  9. TORSEMIDE. [Concomitant]
     Active Substance: TORSEMIDE
  10. VITAMIN D3 [Concomitant]
     Active Substance: CHOLECALCIFEROL
  11. XERMELO [Suspect]
     Active Substance: TELOTRISTAT ETHYL
     Indication: SERUM SEROTONIN INCREASED
  12. CARVEDILOL. [Concomitant]
     Active Substance: CARVEDILOL
  13. XERMELO [Suspect]
     Active Substance: TELOTRISTAT ETHYL
     Indication: CARCINOID SYNDROME
  14. TIMOLOL MALEATE. [Concomitant]
     Active Substance: TIMOLOL MALEATE
  15. MIRALAX [Concomitant]
     Active Substance: POLYETHYLENE GLYCOL 3350
  16. TRAVOPROST. [Concomitant]
     Active Substance: TRAVOPROST
  17. SPIRONOLACTONE. [Concomitant]
     Active Substance: SPIRONOLACTONE

REACTIONS (4)
  - Off label use [Not Recovered/Not Resolved]
  - Peripheral swelling [Not Recovered/Not Resolved]
  - Blood chromogranin A increased [Unknown]
  - Drug ineffective [Not Recovered/Not Resolved]
